FAERS Safety Report 20779088 (Version 4)
Quarter: 2022Q2

REPORT INFORMATION
  Report Type: Spontaneous
  Country: US (occurrence: US)
  Receive Date: 20220503
  Receipt Date: 20220513
  Transmission Date: 20220720
  Serious: No
  Sender: FDA-Public Use
  Company Number: US-BIOGEN-2016BI00314977

PATIENT
  Age: 63 Year
  Sex: Female

DRUGS (2)
  1. TECFIDERA [Suspect]
     Active Substance: DIMETHYL FUMARATE
     Indication: Multiple sclerosis
     Dosage: MAINTENANCE DOSE
     Route: 048
     Dates: start: 20161031
  2. TECFIDERA [Suspect]
     Active Substance: DIMETHYL FUMARATE
     Route: 065
     Dates: start: 20161027, end: 20170127

REACTIONS (10)
  - Multiple sclerosis [Unknown]
  - Lower respiratory tract infection [Unknown]
  - Feeling abnormal [Recovered/Resolved]
  - Rash pruritic [Recovered/Resolved]
  - Flushing [Unknown]
  - Rash [Unknown]
  - Hypersensitivity [Unknown]
  - Feeling hot [Unknown]
  - Burning sensation [Recovered/Resolved]
  - Hot flush [Recovered/Resolved]

NARRATIVE: CASE EVENT DATE: 20161027
